FAERS Safety Report 10170180 (Version 1)
Quarter: 2014Q2

REPORT INFORMATION
  Report Type: Report from Study
  Country: US (occurrence: US)
  Receive Date: 20140513
  Receipt Date: 20140513
  Transmission Date: 20141212
  Serious: Yes (Other)
  Sender: FDA-Public Use
  Company Number: US-ABBVIE-14P-163-1234258-00

PATIENT
  Age: 9 Year
  Sex: Female
  Weight: 33 kg

DRUGS (1)
  1. LUPRON DEPOT-PED [Suspect]
     Indication: PRECOCIOUS PUBERTY
     Route: 030
     Dates: start: 2011, end: 20140325

REACTIONS (5)
  - Upper respiratory tract infection [Recovered/Resolved]
  - Dyspnoea [Recovered/Resolved]
  - Palpitations [Recovered/Resolved]
  - Hypersensitivity [Recovered/Resolved]
  - Asthma [Recovered/Resolved]
